FAERS Safety Report 8047417-4 (Version None)
Quarter: 2012Q1

REPORT INFORMATION
  Report Type: 
  Country: None (occurrence: None)
  Receive Date: 20120116
  Receipt Date: 20120106
  Transmission Date: 20120608
  Serious: Yes (Hospitalization, Other)
  Sender: FDA-Public Use
  Company Number: US-JNJFOC-20111201012

PATIENT
  Sex: Female
  Weight: 44.45 kg

DRUGS (7)
  1. XARELTO [Suspect]
     Indication: KNEE ARTHROPLASTY
     Route: 048
     Dates: start: 20111129, end: 20111201
  2. COREG [Concomitant]
     Indication: HYPERTENSION
     Dates: start: 20111129
  3. LASIX [Concomitant]
     Indication: HYPERTENSION
  4. DOCUSATE [Concomitant]
     Indication: BOWEL MOVEMENT IRREGULARITY
     Dates: start: 20111128
  5. SYNTHROID [Concomitant]
     Indication: HYPOTHYROIDISM
     Dates: start: 20111129
  6. XARELTO [Suspect]
     Indication: THROMBOSIS PROPHYLAXIS
     Route: 048
     Dates: start: 20111129, end: 20111201
  7. CELEBREX [Concomitant]
     Indication: PAIN
     Dates: start: 20111128

REACTIONS (1)
  - PULMONARY EMBOLISM [None]
